FAERS Safety Report 6321959-1 (Version None)
Quarter: 2009Q3

REPORT INFORMATION
  Report Type: 
  Country: None (occurrence: None)
  Receive Date: 20090824
  Receipt Date: 20090813
  Transmission Date: 20100115
  Serious: Yes (Hospitalization)
  Sender: FDA-Public Use
  Company Number: CH-NOVOPROD-290564

PATIENT
  Age: 35 Year
  Sex: Female

DRUGS (7)
  1. NOVORAPID PENFILL [Suspect]
     Indication: GESTATIONAL DIABETES
     Dates: end: 20081014
  2. INSULATARD HM PENFILL [Suspect]
     Indication: GESTATIONAL DIABETES
     Dates: end: 20081014
  3. OMEPRAZOLE [Concomitant]
     Indication: HELICOBACTER GASTRITIS
     Dates: start: 20080508, end: 20080517
  4. FLAGYL [Concomitant]
     Indication: HELICOBACTER GASTRITIS
     Dates: start: 20080508, end: 20080517
  5. KLACID                             /00984601/ [Concomitant]
     Indication: HELICOBACTER GASTRITIS
     Dates: start: 20080508, end: 20080517
  6. DAFALGAN                           /00020001/ [Concomitant]
  7. MORPHINE [Concomitant]

REACTIONS (4)
  - BREECH PRESENTATION [None]
  - DIABETES MELLITUS INADEQUATE CONTROL [None]
  - DRUG EXPOSURE DURING PREGNANCY [None]
  - PREMATURE RUPTURE OF MEMBRANES [None]
